FAERS Safety Report 22137144 (Version 1)
Quarter: 2023Q1

REPORT INFORMATION
  Report Type: Report from Study
  Country: GB (occurrence: GB)
  Receive Date: 20230324
  Receipt Date: 20230324
  Transmission Date: 20230418
  Serious: Yes (Other)
  Sender: FDA-Public Use
  Company Number: GB-TAKEDA-2023TUS018018

PATIENT
  Sex: Female

DRUGS (2)
  1. VEDOLIZUMAB [Suspect]
     Active Substance: VEDOLIZUMAB
     Indication: Crohn^s disease
     Dosage: 108 MILLIGRAM, Q2WEEKS
     Route: 058
  2. VEDOLIZUMAB [Suspect]
     Active Substance: VEDOLIZUMAB
     Indication: Enteritis

REACTIONS (7)
  - Breast cancer [Unknown]
  - Agitation [Unknown]
  - Memory impairment [Unknown]
  - Amnesia [Unknown]
  - Anxiety [Unknown]
  - Weight decreased [Unknown]
  - Inappropriate schedule of product administration [Unknown]
